FAERS Safety Report 16855427 (Version 1)
Quarter: 2019Q3

REPORT INFORMATION
  Report Type: Report from Study
  Country: IN (occurrence: IN)
  Receive Date: 20190926
  Receipt Date: 20190926
  Transmission Date: 20191005
  Serious: Yes (Death)
  Sender: FDA-Public Use
  Company Number: PHHY2018IN122692

PATIENT
  Age: 59 Year
  Sex: Male

DRUGS (1)
  1. VYMADA [Suspect]
     Active Substance: SACUBITRIL\VALSARTAN
     Indication: CARDIAC FAILURE
     Dosage: 0.5 DF(200 MG), BID (1/2 IN THE MORNING AND 1/2 IN THE NIGHT)
     Route: 048
     Dates: start: 20180925

REACTIONS (3)
  - Death [Fatal]
  - Wrong technique in product usage process [Not Recovered/Not Resolved]
  - Product prescribing error [Not Recovered/Not Resolved]

NARRATIVE: CASE EVENT DATE: 20190902
